FAERS Safety Report 5315831-3 (Version None)
Quarter: 2007Q2

REPORT INFORMATION
  Report Type: 
  Country: None (occurrence: None)
  Receive Date: 20070503
  Receipt Date: 20070423
  Transmission Date: 20071010
  Serious: Yes (Other)
  Sender: FDA-Public Use
  Company Number: IT-ELI_LILLY_AND_COMPANY-IT200704006061

PATIENT
  Age: 74 Year
  Sex: Female

DRUGS (4)
  1. FORTEO [Suspect]
     Indication: OSTEOPOROSIS
     Dosage: 20 UG, DAILY (1/D)
     Route: 058
     Dates: start: 20070420, end: 20070423
  2. CARDIOASPIRINA [Concomitant]
     Dosage: 1 UNK, DAILY (1/D)
     Route: 048
     Dates: start: 20050101
  3. PROCAPTAN [Concomitant]
     Dates: start: 20020101
  4. CRESTOR [Concomitant]
     Dates: start: 20050101

REACTIONS (3)
  - ABDOMINAL PAIN [None]
  - HAEMATURIA [None]
  - MELAENA [None]
